FAERS Safety Report 4630443-2 (Version None)
Quarter: 2005Q2

REPORT INFORMATION
  Report Type: 
  Country: None (occurrence: None)
  Receive Date: 20050406
  Receipt Date: 20050323
  Transmission Date: 20051028
  Serious: Yes (Hospitalization)
  Sender: FDA-Public Use
  Company Number: USA041285122

PATIENT
  Age: 61 Year
  Sex: Female

DRUGS (3)
  1. FORTEO [Suspect]
     Indication: OSTEOPOROSIS
     Dates: start: 20040901
  2. TUMS (CALCIUM CARBONATE) [Concomitant]
  3. SYNTHROID [Concomitant]

REACTIONS (5)
  - ANAESTHETIC COMPLICATION [None]
  - PHARMACEUTICAL PRODUCT COMPLAINT [None]
  - POST PROCEDURAL NAUSEA [None]
  - POST PROCEDURAL PAIN [None]
  - VOMITING [None]
